FAERS Safety Report 5767535-0 (Version None)
Quarter: 2008Q2

REPORT INFORMATION
  Report Type: 
  Country: None (occurrence: None)
  Receive Date: 20080612
  Receipt Date: 20080530
  Transmission Date: 20081010
  Serious: Yes (Other)
  Sender: FDA-Public Use
  Company Number: GB-JNJFOC-20080403047

PATIENT
  Age: 71 Year
  Sex: Female
  Weight: 97 kg

DRUGS (14)
  1. MICONAZOLE NITRATE [Suspect]
     Route: 048
  2. MICONAZOLE NITRATE [Suspect]
     Indication: ORAL CANDIDIASIS
     Route: 048
  3. CRANBERRY JUICE [Interacting]
     Indication: DRUG USE FOR UNKNOWN INDICATION
     Route: 048
  4. POMEGRANATE [Interacting]
     Indication: DRUG USE FOR UNKNOWN INDICATION
     Route: 048
  5. CO-PROXAMOL [Concomitant]
     Indication: DRUG USE FOR UNKNOWN INDICATION
     Route: 065
  6. WARFARIN SODIUM [Concomitant]
     Indication: ATRIAL FIBRILLATION
     Route: 065
  7. CARBIMAZOLE [Concomitant]
     Indication: HYPERTHYROIDISM
     Route: 048
  8. CO-AMILOFRUSE [Concomitant]
     Indication: CARDIAC FAILURE CONGESTIVE
     Route: 048
  9. ELANTAN LA [Concomitant]
     Indication: MYOCARDIAL ISCHAEMIA
     Route: 065
  10. FLUOXETINE HCL [Concomitant]
     Indication: DEPRESSION
     Route: 048
  11. PRIADEL [Concomitant]
     Indication: MANIA
     Route: 048
  12. ROSUVASTATIN [Concomitant]
     Indication: DRUG USE FOR UNKNOWN INDICATION
     Route: 048
  13. SERETIDE [Concomitant]
     Indication: ASTHMA
     Route: 055
  14. VENTOLIN [Concomitant]
     Indication: DRUG USE FOR UNKNOWN INDICATION
     Route: 055

REACTIONS (3)
  - CONTUSION [None]
  - DRUG INTERACTION [None]
  - INTERNATIONAL NORMALISED RATIO INCREASED [None]
